FAERS Safety Report 10303431 (Version 1)
Quarter: 2014Q3

REPORT INFORMATION
  Report Type: Spontaneous
  Country: US (occurrence: US)
  Receive Date: 20140714
  Receipt Date: 20140714
  Transmission Date: 20150326
  Serious: Yes (Hospitalization, Other)
  Sender: FDA-Public Use
  Company Number: US-ABBVIE-14P-163-1256886-00

PATIENT
  Age: 62 Year
  Sex: Male

DRUGS (2)
  1. ANDROGEL [Suspect]
     Active Substance: TESTOSTERONE
     Indication: BLOOD TESTOSTERONE DECREASED
     Dosage: AS DIRECTED
     Dates: end: 20120515
  2. TESTIM [Suspect]
     Active Substance: TESTOSTERONE
     Indication: BLOOD TESTOSTERONE DECREASED
     Dosage: AS DIRECTED
     Dates: end: 201201

REACTIONS (9)
  - Emotional distress [Unknown]
  - Thrombosis [Unknown]
  - Chest pain [Unknown]
  - Atrial fibrillation [Unknown]
  - Injury [Unknown]
  - Economic problem [Unknown]
  - Cardiac failure [Unknown]
  - Cardiac disorder [Recovered/Resolved]
  - Pain [Unknown]

NARRATIVE: CASE EVENT DATE: 20121126
